FAERS Safety Report 9807643 (Version 1)
Quarter: 2014Q1

REPORT INFORMATION
  Report Type: Spontaneous
  Country: US (occurrence: US)
  Receive Date: 20140110
  Receipt Date: 20140110
  Transmission Date: 20141002
  Serious: No
  Sender: FDA-Public Use
  Company Number: US-009507513-1401USA003744

PATIENT
  Age: 24 Year
  Sex: Female
  Weight: 113.83 kg

DRUGS (3)
  1. NEXPLANON [Suspect]
     Indication: CONTRACEPTION
     Dosage: 1 DF, UNK; 1 ROD
     Route: 059
     Dates: start: 20131104
  2. EFFEXOR [Concomitant]
  3. KLONOPIN [Concomitant]

REACTIONS (3)
  - Device breakage [Unknown]
  - Metrorrhagia [Unknown]
  - Product quality issue [Unknown]
